FAERS Safety Report 10354784 (Version 2)
Quarter: 2014Q3

REPORT INFORMATION
  Report Type: Spontaneous
  Country: US (occurrence: US)
  Receive Date: 20140731
  Receipt Date: 20140806
  Transmission Date: 20150326
  Serious: Yes (Death)
  Sender: FDA-Public Use
  Company Number: US-FRI-1000069359

PATIENT
  Age: 92 Year
  Sex: Female

DRUGS (7)
  1. HYDROCODONE [Concomitant]
     Active Substance: HYDROCODONE
  2. TIZANIDINE [Concomitant]
     Active Substance: TIZANIDINE
  3. FENTANYL. [Concomitant]
     Active Substance: FENTANYL
  4. LASIX [Concomitant]
     Active Substance: FUROSEMIDE
  5. PREVACID [Concomitant]
     Active Substance: LANSOPRAZOLE
  6. NAMENDA XR [Suspect]
     Active Substance: MEMANTINE HYDROCHLORIDE
     Indication: DEMENTIA
     Dosage: 28MG
     Route: 048
     Dates: start: 201405, end: 20140723
  7. EXELON [Concomitant]
     Active Substance: RIVASTIGMINE TARTRATE

REACTIONS (1)
  - Death [Fatal]

NARRATIVE: CASE EVENT DATE: 20140723
